FAERS Safety Report 9303065 (Version 3)
Quarter: 2013Q3

REPORT INFORMATION
  Report Type: Spontaneous
  Country: US (occurrence: None)
  Receive Date: 20130517
  Receipt Date: 20130829
  Transmission Date: 20140515
  Serious: Yes (Hospitalization)
  Sender: FDA-Public Use
  Company Number: ACO_36093_2013

PATIENT
  Age: 43 Year
  Sex: Male

DRUGS (5)
  1. AMPYRA [Suspect]
     Indication: PRODUCT USED FOR UNKNOWN INDICATION
     Route: 048
  2. BACLOFEN [Concomitant]
  3. GILENYA [Concomitant]
  4. LISINOPRIL [Concomitant]
  5. BOTOX [Concomitant]

REACTIONS (5)
  - Pneumonia [None]
  - Influenza [None]
  - Drug ineffective [None]
  - Dysgraphia [None]
  - Fear [None]
